FAERS Safety Report 4503581-2 (Version None)
Quarter: 2004Q4

REPORT INFORMATION
  Report Type: 
  Country: None (occurrence: None)
  Receive Date: 20041117
  Receipt Date: 20040826
  Transmission Date: 20050328
  Serious: Yes (Hospitalization)
  Sender: FDA-Public Use
  Company Number: PHBS2004JP11365

PATIENT
  Age: 64 Year
  Sex: Male
  Weight: 58 kg

DRUGS (4)
  1. DIOVAN [Suspect]
     Indication: HYPERTENSION
     Dosage: 40 MG, QD
     Route: 048
     Dates: start: 20040611, end: 20040618
  2. DETANTOL R [Concomitant]
     Indication: HYPERTENSION
     Route: 048
  3. MUNOBAL [Concomitant]
     Indication: HYPERTENSION
     Dosage: 5 MG, UNK
     Route: 048
  4. SERENACE [Concomitant]
     Indication: DYSKINESIA
     Dosage: .75 MG, QD
     Route: 048
     Dates: start: 20040604, end: 20040611

REACTIONS (9)
  - BLOOD ALKALINE PHOSPHATASE INCREASED [None]
  - BLOOD CREATININE INCREASED [None]
  - C-REACTIVE PROTEIN INCREASED [None]
  - DEHYDRATION [None]
  - PYREXIA [None]
  - RASH [None]
  - RASH ERYTHEMATOUS [None]
  - TOXIC SKIN ERUPTION [None]
  - WHITE BLOOD CELL COUNT INCREASED [None]
